FAERS Safety Report 8920164 (Version 1)
Quarter: 2012Q4

REPORT INFORMATION
  Report Type: 
  Country: US (occurrence: US)
  Receive Date: 20121122
  Receipt Date: 20121122
  Transmission Date: 20130627
  Serious: Yes (Death)
  Sender: FDA-Public Use
  Company Number: PHEH2012US022589

PATIENT
  Age: 58 Year
  Sex: Female
  Weight: 65.76 kg

DRUGS (6)
  1. AFINITOR [Suspect]
     Indication: BREAST CANCER METASTATIC
     Dosage: 10 mg, QD
     Route: 048
     Dates: start: 20121015, end: 20121029
  2. PRAVASTATIN [Concomitant]
     Dosage: 20 mg, UNK
  3. BABY ASPIRIN [Concomitant]
  4. VITAMIN D3 [Concomitant]
     Dosage: 2000 IU, UNK
  5. CALCIUM CARBIMIDE [Concomitant]
  6. SYNTHROID [Concomitant]
     Dosage: 0.025 mg, UNK

REACTIONS (1)
  - Sudden death [Fatal]
